FAERS Safety Report 18712361 (Version 1)
Quarter: 2021Q1

REPORT INFORMATION
  Report Type: Report from Study
  Country: None (occurrence: RO)
  Receive Date: 20210107
  Receipt Date: 20210107
  Transmission Date: 20210419
  Serious: Yes (Hospitalization, Other)
  Sender: FDA-Public Use
  Company Number: RO-ABBVIE-21K-135-3718372-00

PATIENT
  Age: 77 Year
  Sex: Female

DRUGS (6)
  1. METOPROLOL. [Concomitant]
     Active Substance: METOPROLOL
     Indication: HYPERTENSION
     Dosage: STARTED BEFORE STARTING ABBVIE THERAPY
     Route: 048
  2. ASPACARDIN [Concomitant]
     Indication: HYPERTENSION
     Route: 048
     Dates: start: 202012
  3. VIEKIRAX [Suspect]
     Active Substance: OMBITASVIR\PARITAPREVIR\RITONAVIR
     Indication: HEPATIC CIRRHOSIS
     Route: 048
     Dates: start: 20200727, end: 20201018
  4. EXVIERA [Suspect]
     Active Substance: DASABUVIR
     Indication: HEPATIC CIRRHOSIS
     Route: 048
     Dates: start: 20200727, end: 20201018
  5. OMEPRAZOL [Concomitant]
     Active Substance: OMEPRAZOLE
     Indication: PROPHYLAXIS
     Route: 048
     Dates: start: 202011
  6. FRAXIPARINE [Concomitant]
     Active Substance: NADROPARIN CALCIUM
     Indication: ANTICOAGULANT THERAPY
     Route: 051
     Dates: start: 202011, end: 202012

REACTIONS (5)
  - Cardiac failure [Not Recovered/Not Resolved]
  - Hepatic pain [Recovered/Resolved]
  - Lower limb fracture [Recovering/Resolving]
  - Myocardial ischaemia [Not Recovered/Not Resolved]
  - Fall [Unknown]

NARRATIVE: CASE EVENT DATE: 2020
